FAERS Safety Report 20744845 (Version 1)
Quarter: 2022Q2

REPORT INFORMATION
  Report Type: Spontaneous
  Country: IN (occurrence: IN)
  Receive Date: 20220425
  Receipt Date: 20220425
  Transmission Date: 20220721
  Serious: Yes (Death)
  Sender: FDA-Public Use
  Company Number: IN-PFIZER INC-202200587300

PATIENT
  Age: 68 Year
  Sex: Female

DRUGS (4)
  1. PALBOCICLIB [Suspect]
     Active Substance: PALBOCICLIB
     Indication: Breast cancer
     Dosage: ONCE X 3 WEEKS
     Route: 048
     Dates: start: 20220122
  2. LETROZOLE [Concomitant]
     Active Substance: LETROZOLE
  3. SHELCAL CT [Concomitant]
     Dosage: 500 MG, 2X/DAY
  4. OSTEOFOS [Concomitant]
     Dosage: 35 MG, WEEKLY

REACTIONS (1)
  - Death [Fatal]

NARRATIVE: CASE EVENT DATE: 20220317
